FAERS Safety Report 7715676-0 (Version None)
Quarter: 2011Q3

REPORT INFORMATION
  Report Type: 
  Country: None (occurrence: None)
  Receive Date: 20110829
  Receipt Date: 20110825
  Transmission Date: 20111222
  Serious: No
  Sender: FDA-Public Use
  Company Number: JP-PFIZER INC-2011187520

PATIENT
  Age: 40 Year
  Sex: Female

DRUGS (2)
  1. LYRICA [Suspect]
     Indication: DIABETIC NEUROPATHY
     Dosage: 25 MG/DAY
     Route: 048
     Dates: start: 20110621, end: 20110626
  2. LYRICA [Suspect]
     Dosage: 50 MG/DAY
     Route: 048
     Dates: start: 20110627

REACTIONS (2)
  - VISUAL ACUITY REDUCED [None]
  - FACE OEDEMA [None]
